FAERS Safety Report 5458046-0 (Version None)
Quarter: 2007Q3

REPORT INFORMATION
  Report Type: 
  Country: None (occurrence: None)
  Receive Date: 20070919
  Receipt Date: 20070911
  Transmission Date: 20080115
  Serious: Yes (Other)
  Sender: FDA-Public Use
  Company Number: PHEH2007US12261

PATIENT
  Age: 63 Year
  Sex: Female
  Weight: 53.514 kg

DRUGS (8)
  1. AREDIA [Suspect]
     Dates: end: 20060629
  2. THALOMID [Concomitant]
     Indication: MULTIPLE MYELOMA
     Route: 048
     Dates: start: 20070421
  3. THALOMID [Concomitant]
     Dosage: 50 MG, QD
     Route: 048
     Dates: start: 20060707, end: 20070413
  4. VINCRISTINE [Concomitant]
     Indication: MULTIPLE MYELOMA
  5. LISINOPRIL [Concomitant]
  6. LOVASTATIN [Concomitant]
  7. DILTIAZEM [Concomitant]
  8. LOPID [Concomitant]

REACTIONS (7)
  - BLOOD CREATININE INCREASED [None]
  - DIPLOPIA [None]
  - HAEMODIALYSIS [None]
  - PARAESTHESIA [None]
  - RENAL FAILURE CHRONIC [None]
  - RENAL IMPAIRMENT [None]
  - VISION BLURRED [None]
